FAERS Safety Report 18365778 (Version 1)
Quarter: 2020Q4

REPORT INFORMATION
  Report Type: Report from Study
  Country: US (occurrence: US)
  Receive Date: 20201009
  Receipt Date: 20201009
  Transmission Date: 20210114
  Serious: No
  Sender: FDA-Public Use
  Company Number: US-TERSERA THERAPEUTICS LLC-US2020TSO013843

PATIENT

DRUGS (2)
  1. XPOVIO [Concomitant]
     Active Substance: SELINEXOR
     Dosage: 80 MG ONCE WEEKLY
     Dates: start: 20191204
  2. ROLAPITANT HYDROCHLORIDE [Suspect]
     Active Substance: ROLAPITANT
     Dosage: 180 MG EVERY 2 WEEKS
     Dates: start: 20200116

REACTIONS (2)
  - Influenza [Unknown]
  - Drug intolerance [Unknown]
